FAERS Safety Report 9282761 (Version 2)
Quarter: 2013Q2

REPORT INFORMATION
  Report Type: Spontaneous
  Country: US (occurrence: None)
  Receive Date: 20101130
  Receipt Date: 20130419
  Transmission Date: 20140414
  Serious: Yes (Life-Threatening)
  Sender: FDA-Public Use
  Company Number: 54973 RSAE102910TG003

PATIENT
  Age: 19 Month
  Sex: Male
  Weight: 13.61 kg

DRUGS (1)
  1. HYLAND^S TEETHING TABLETS [Suspect]
     Indication: TEETHING
     Dosage: 3  TABS  1-2  X  A  DAY

REACTIONS (1)
  - Febrile convulsion [None]
